FAERS Safety Report 21087745 (Version 1)
Quarter: 2022Q3

REPORT INFORMATION
  Report Type: Spontaneous
  Country: US (occurrence: None)
  Receive Date: 20220714
  Receipt Date: 20220714
  Transmission Date: 20221027
  Serious: No
  Sender: FDA-Public Use
  Company Number: None

PATIENT
  Sex: 0

DRUGS (2)
  1. TRAVATAN Z [Suspect]
     Active Substance: TRAVOPROST
     Dosage: FREQUENCY : DAILY;?
     Route: 047
     Dates: start: 20220705, end: 20220705
  2. TRAVATAN Z [Suspect]
     Active Substance: TRAVOPROST
     Dosage: FREQUENCY : DAILY;?
     Route: 047
     Dates: end: 20220712

REACTIONS (5)
  - Eye irritation [None]
  - Eye pain [None]
  - Eye discharge [None]
  - Ear pain [None]
  - Neck pain [None]

NARRATIVE: CASE EVENT DATE: 20220705
